FAERS Safety Report 4358443-0 (Version None)
Quarter: 2004Q2

REPORT INFORMATION
  Report Type: 
  Country: None (occurrence: None)
  Receive Date: 20040514
  Receipt Date: 20040507
  Transmission Date: 20050107
  Serious: Yes (Other)
  Sender: FDA-Public Use
  Company Number: US-ROCHE-367452

PATIENT
  Sex: Female

DRUGS (1)
  1. ROCEPHIN [Suspect]
     Route: 065

REACTIONS (1)
  - BARTTER'S SYNDROME [None]
